FAERS Safety Report 21495492 (Version 1)
Quarter: 2022Q4

REPORT INFORMATION
  Report Type: Report from Study
  Country: US (occurrence: US)
  Receive Date: 20221022
  Receipt Date: 20221022
  Transmission Date: 20230113
  Serious: No
  Sender: FDA-Public Use
  Company Number: US-NOVARTISTESTPH-NVSC2022US236762

PATIENT
  Sex: Female

DRUGS (1)
  1. COSENTYX [Suspect]
     Active Substance: SECUKINUMAB
     Indication: Psoriasis
     Dosage: 300 MG, QMO (INJECT 2 (150 MG/ML) PENS EVERY 4 WEEKS)
     Route: 058
     Dates: start: 20210707

REACTIONS (5)
  - Seborrhoeic keratosis [Unknown]
  - Skin papilloma [Unknown]
  - Pseudocyst [Unknown]
  - Acrochordon [Unknown]
  - Papule [Unknown]
